FAERS Safety Report 25945942 (Version 2)
Quarter: 2025Q4

REPORT INFORMATION
  Report Type: Spontaneous
  Country: JP (occurrence: JP)
  Receive Date: 20251021
  Receipt Date: 20251104
  Transmission Date: 20260118
  Serious: Yes (Life-Threatening, Other)
  Sender: BRISTOL-MYERS SQUIBB COMPANY
  Company Number: JP-BRISTOL-MYERS SQUIBB COMPANY-2025-129091

PATIENT
  Age: 50 Year
  Sex: Male
  Weight: 70.5 kg

DRUGS (2)
  1. AUGTYRO [Suspect]
     Active Substance: REPOTRECTINIB
     Indication: Non-small cell lung cancer metastatic
     Route: 048
     Dates: start: 20250910, end: 20250911
  2. AUGTYRO [Suspect]
     Active Substance: REPOTRECTINIB
     Route: 048
     Dates: start: 20250912

REACTIONS (1)
  - Dizziness [Recovered/Resolved]

NARRATIVE: CASE EVENT DATE: 20250911
